FAERS Safety Report 6143861-0 (Version None)
Quarter: 2009Q2

REPORT INFORMATION
  Report Type: 
  Country: None (occurrence: None)
  Receive Date: 20090403
  Receipt Date: 20090326
  Transmission Date: 20091009
  Serious: Yes (Hospitalization)
  Sender: FDA-Public Use
  Company Number: US-GENENTECH-279190

PATIENT
  Age: 63 Year
  Sex: Male
  Weight: 74.4 kg

DRUGS (11)
  1. BEVACIZUMAB [Suspect]
     Indication: MESOTHELIOMA
     Dosage: 15 MG/KG, Q21D
     Route: 042
     Dates: start: 20090224
  2. PEMETREXED [Suspect]
     Indication: MESOTHELIOMA
     Dosage: 500 MG/M2, Q21D
     Route: 042
     Dates: start: 20090224
  3. CISPLATIN [Suspect]
     Indication: MESOTHELIOMA
     Dosage: 75 MG/M2, Q21D
     Route: 042
     Dates: start: 20090224
  4. POTASSIUM CHLORIDE [Concomitant]
     Indication: DRUG USE FOR UNKNOWN INDICATION
     Dosage: UNK
     Dates: start: 20090312
  5. TYLENOL [Concomitant]
     Indication: DRUG USE FOR UNKNOWN INDICATION
     Dosage: UNK
  6. CEFTAZIDIME [Concomitant]
     Indication: DRUG USE FOR UNKNOWN INDICATION
     Dosage: UNK
     Dates: start: 20090312
  7. NEURONTIN [Concomitant]
     Indication: DRUG USE FOR UNKNOWN INDICATION
     Dosage: UNK
     Dates: start: 20090224
  8. DILAUDID [Concomitant]
     Indication: DRUG USE FOR UNKNOWN INDICATION
     Dosage: UNK
     Dates: start: 20090307
  9. COMPAZINE [Concomitant]
     Indication: DRUG USE FOR UNKNOWN INDICATION
     Dosage: UNK
     Dates: start: 20090224
  10. LOVENOX [Concomitant]
     Indication: DRUG USE FOR UNKNOWN INDICATION
     Dosage: UNK
     Dates: start: 20090307
  11. PROTONIX [Concomitant]
     Indication: DRUG USE FOR UNKNOWN INDICATION

REACTIONS (1)
  - SMALL INTESTINAL OBSTRUCTION [None]
